FAERS Safety Report 5532948-9 (Version None)
Quarter: 2007Q4

REPORT INFORMATION
  Report Type: 
  Country: None (occurrence: None)
  Receive Date: 20071129
  Receipt Date: 20071129
  Transmission Date: 20080405
  Serious: Yes (Hospitalization, Other)
  Sender: FDA-Public Use
  Company Number: None

PATIENT
  Sex: Male
  Weight: 83.9154 kg

DRUGS (1)
  1. CHANTIX [Suspect]
     Indication: SMOKING CESSATION THERAPY
     Dosage: 1 MG  MORNING + EVENING  PO
     Route: 048
     Dates: start: 20070427, end: 20070516

REACTIONS (4)
  - ABNORMAL BEHAVIOUR [None]
  - AGGRESSION [None]
  - AMNESIA [None]
  - PHYSICAL ABUSE [None]
